FAERS Safety Report 7359902-9 (Version None)
Quarter: 2011Q1

REPORT INFORMATION
  Report Type: 
  Country: None (occurrence: None)
  Receive Date: 20110317
  Receipt Date: 20110309
  Transmission Date: 20110831
  Serious: Yes (Hospitalization)
  Sender: FDA-Public Use
  Company Number: US-GILEAD-2011-0037386

PATIENT
  Age: 22 Year
  Sex: Male

DRUGS (3)
  1. LETAIRIS [Suspect]
     Indication: PRODUCT USED FOR UNKNOWN INDICATION
     Route: 048
     Dates: start: 20100625
  2. REMODULIN [Concomitant]
  3. ADCIRCA [Concomitant]

REACTIONS (2)
  - PNEUMONIA [None]
  - DEVICE RELATED INFECTION [None]
